FAERS Safety Report 11492215 (Version 1)
Quarter: 2015Q3

REPORT INFORMATION
  Report Type: Spontaneous
  Country: FR (occurrence: None)
  Receive Date: 20150909
  Receipt Date: 20150909
  Transmission Date: 20151125
  Serious: Yes (Other)
  Sender: FDA-Public Use
  Company Number: 2015HINLIT0737

PATIENT
  Age: 47 Year
  Sex: Female

DRUGS (3)
  1. OLANZIPINE [Concomitant]
     Active Substance: OLANZAPINE
  2. ARIPIPRAZOLE. [Suspect]
     Active Substance: ARIPIPRAZOLE
     Indication: SCHIZOPHRENIA
     Dosage: 15MG/DAY FOR 6 YEARS CUMMULATIVE DOSE OF 200G
  3. HALOPERIDOL. [Suspect]
     Active Substance: HALOPERIDOL
     Indication: PRODUCT USED FOR UNKNOWN INDICATION
     Dosage: 15MG/DAY CUMULATIVE DOSE OF 60 G OF HALOPERIDOL

REACTIONS (2)
  - Chorioretinopathy [None]
  - Toxicity to various agents [None]
